FAERS Safety Report 6262258-6 (Version None)
Quarter: 2009Q3

REPORT INFORMATION
  Report Type: 
  Country: None (occurrence: None)
  Receive Date: 20090709
  Receipt Date: 20090706
  Transmission Date: 20100115
  Serious: Yes (Other)
  Sender: FDA-Public Use
  Company Number: CA-TEVA-200873USA

PATIENT
  Age: 34 Year
  Sex: Female

DRUGS (1)
  1. TAMOXIFEN CITRATE 10MG TABLETS [Suspect]

REACTIONS (1)
  - DEPRESSION SUICIDAL [None]
